FAERS Safety Report 5508081-9 (Version None)
Quarter: 2007Q4

REPORT INFORMATION
  Report Type: 
  Country: None (occurrence: None)
  Receive Date: 20071106
  Receipt Date: 20071027
  Transmission Date: 20080405
  Serious: Yes (Hospitalization, Other)
  Sender: FDA-Public Use
  Company Number: US-PFIZER INC-2007047382

PATIENT
  Sex: Female
  Weight: 63.636 kg

DRUGS (4)
  1. LIPITOR [Suspect]
     Indication: BLOOD CHOLESTEROL INCREASED
     Route: 048
     Dates: start: 20070101, end: 20070301
  2. LIPITOR [Suspect]
     Indication: HYPERLIPIDAEMIA
  3. ACETYLSALICYLIC ACID SRT [Concomitant]
  4. VITAMINS [Concomitant]

REACTIONS (8)
  - ABASIA [None]
  - MEMORY IMPAIRMENT [None]
  - MUSCLE DISORDER [None]
  - MUSCULAR WEAKNESS [None]
  - OEDEMA PERIPHERAL [None]
  - PNEUMONIA [None]
  - SKIN BURNING SENSATION [None]
  - WHITE BLOOD CELL COUNT INCREASED [None]
